FAERS Safety Report 11921430 (Version 2)
Quarter: 2016Q1

REPORT INFORMATION
  Report Type: Report from Study
  Country: US (occurrence: US)
  Receive Date: 20160115
  Receipt Date: 20160128
  Transmission Date: 20160526
  Serious: No
  Sender: FDA-Public Use
  Company Number: US-AMGEN-USASP2016004516

PATIENT
  Age: 41 Year
  Sex: Female

DRUGS (7)
  1. BENADRYL [Suspect]
     Active Substance: DIPHENHYDRAMINE HYDROCHLORIDE
     Indication: INJECTION SITE BRUISING
  2. ENBREL [Suspect]
     Active Substance: ETANERCEPT
     Indication: RHEUMATOID ARTHRITIS
     Dosage: 50 MG, QWK
     Route: 065
     Dates: start: 201512
  3. ENBREL [Suspect]
     Active Substance: ETANERCEPT
     Indication: ARTHRITIS
  4. BENADRYL [Suspect]
     Active Substance: DIPHENHYDRAMINE HYDROCHLORIDE
     Indication: INJECTION SITE IRRITATION
     Dosage: UNK
     Route: 065
  5. ENBREL [Suspect]
     Active Substance: ETANERCEPT
     Indication: PSORIATIC ARTHROPATHY
  6. ENBREL [Suspect]
     Active Substance: ETANERCEPT
     Indication: COLITIS ULCERATIVE
  7. BENADRYL [Suspect]
     Active Substance: DIPHENHYDRAMINE HYDROCHLORIDE
     Indication: INJECTION SITE PRURITUS

REACTIONS (8)
  - Dyspnoea [Unknown]
  - Injection site swelling [Not Recovered/Not Resolved]
  - Palpitations [Unknown]
  - Injection site erythema [Not Recovered/Not Resolved]
  - Injection site irritation [Unknown]
  - Injection site pruritus [Unknown]
  - Injection site pain [Not Recovered/Not Resolved]
  - Injection site bruising [Unknown]

NARRATIVE: CASE EVENT DATE: 20160112
